FAERS Safety Report 4664633-X (Version None)
Quarter: 2005Q2

REPORT INFORMATION
  Report Type: 
  Country: None (occurrence: None)
  Receive Date: 20050518
  Receipt Date: 20050506
  Transmission Date: 20051028
  Serious: Yes (Other)
  Sender: FDA-Public Use
  Company Number: BR-ROCHE-404328

PATIENT
  Age: 33 Year
  Sex: Female
  Weight: 62 kg

DRUGS (5)
  1. ROACUTAN [Suspect]
     Indication: ACNE
     Route: 048
     Dates: start: 20040215, end: 20040615
  2. ROACUTAN [Suspect]
     Route: 048
     Dates: start: 20030315
  3. ROACUTAN [Suspect]
     Route: 048
     Dates: start: 20041115, end: 20050115
  4. ATENOL [Concomitant]
     Indication: HYPERTENSION
     Route: 048
     Dates: start: 20000615
  5. YASMIN [Concomitant]
     Indication: CONTRACEPTION
     Route: 048

REACTIONS (2)
  - ABDOMINAL PAIN [None]
  - CHOLELITHIASIS [None]
